FAERS Safety Report 23049564 (Version 1)
Quarter: 2023Q4

REPORT INFORMATION
  Report Type: Spontaneous
  Country: None (occurrence: GB)
  Receive Date: 20231010
  Receipt Date: 20231010
  Transmission Date: 20240110
  Serious: Yes (Disabling, Other)
  Sender: FDA-Public Use
  Company Number: GB-Ascend Therapeutics US, LLC-2146866

PATIENT
  Age: 46 Year
  Sex: Female

DRUGS (4)
  1. ESTROGEL [Suspect]
     Active Substance: ESTRADIOL
     Indication: Menopause
     Route: 065
     Dates: start: 20230809
  2. ESTRADIOL [Suspect]
     Active Substance: ESTRADIOL
     Route: 065
     Dates: start: 20230809
  3. PROGESTERONE [Concomitant]
     Active Substance: PROGESTERONE
     Route: 065
     Dates: start: 20230501
  4. CERAZETTE(DESOGESTREL) [Concomitant]
     Route: 065
     Dates: start: 20080101

REACTIONS (2)
  - Vaginal haemorrhage [Not Recovered/Not Resolved]
  - Medication error [None]
